FAERS Safety Report 23520066 (Version 2)
Quarter: 2024Q2

REPORT INFORMATION
  Report Type: Report from Study
  Country: US (occurrence: US)
  Receive Date: 20240214
  Receipt Date: 20240403
  Transmission Date: 20240716
  Serious: Yes (Other)
  Sender: FDA-Public Use
  Company Number: US-ABBVIE-5520419

PATIENT
  Age: 63 Year
  Sex: Male
  Weight: 87 kg

DRUGS (7)
  1. IMBRUVICA [Suspect]
     Active Substance: IBRUTINIB
     Indication: Mantle cell lymphoma stage IV
     Route: 048
  2. ATENOLOL [Concomitant]
     Active Substance: ATENOLOL
     Indication: Product used for unknown indication
  3. IRON [Concomitant]
     Active Substance: IRON
     Indication: Product used for unknown indication
  4. VITAMIN B6 [Concomitant]
     Active Substance: PYRIDOXINE HYDROCHLORIDE
     Indication: Product used for unknown indication
     Dosage: 3 MG-1 MG
  5. CYANOCOBALAMIN [Concomitant]
     Active Substance: CYANOCOBALAMIN
     Indication: Product used for unknown indication
  6. TYLENOL [Concomitant]
     Active Substance: ACETAMINOPHEN
     Indication: Product used for unknown indication
  7. IMBRUVICA [Suspect]
     Active Substance: IBRUTINIB
     Indication: Mantle cell lymphoma stage IV
     Route: 048

REACTIONS (27)
  - Intervertebral disc protrusion [Unknown]
  - Off label use [Unknown]
  - Spinal flattening [Unknown]
  - Spinal osteoarthritis [Unknown]
  - Abdominal mass [Unknown]
  - Diverticulum intestinal [Unknown]
  - Hiatus hernia [Unknown]
  - Pelvic mass [Unknown]
  - Prostatic calcification [Unknown]
  - Renal cyst [Unknown]
  - Lymphadenopathy [Recovered/Resolved]
  - Cardiomegaly [Unknown]
  - Lymphadenopathy [Unknown]
  - Abdominal lymphadenopathy [Unknown]
  - Rectal lesion [Unknown]
  - Splenomegaly [Unknown]
  - Tonsillar disorder [Unknown]
  - Constipation [Unknown]
  - Rectal haemorrhage [Unknown]
  - Intestinal mass [Unknown]
  - Weight decreased [Unknown]
  - Arteriosclerosis coronary artery [Unknown]
  - Splenomegaly [Unknown]
  - Adrenal mass [Unknown]
  - Adrenal adenoma [Unknown]
  - Intervertebral disc degeneration [Unknown]
  - Blood creatinine increased [Unknown]

NARRATIVE: CASE EVENT DATE: 20130823
